FAERS Safety Report 6299657-2 (Version None)
Quarter: 2009Q3

REPORT INFORMATION
  Report Type: 
  Country: None (occurrence: None)
  Receive Date: 20090806
  Receipt Date: 20090728
  Transmission Date: 20100115
  Serious: Yes (Hospitalization, Disabling)
  Sender: FDA-Public Use
  Company Number: US-SANOFI-SYNTHELABO-A03200804896

PATIENT
  Sex: Male
  Weight: 103.9 kg

DRUGS (4)
  1. ZOLOFT [Concomitant]
     Indication: DEPRESSION
     Route: 048
     Dates: start: 20061101
  2. AMBIEN [Suspect]
     Indication: INSOMNIA
     Route: 048
     Dates: start: 20060101
  3. ALCOHOL [Suspect]
     Indication: DRUG USE FOR UNKNOWN INDICATION
     Dosage: UNK
     Route: 048
     Dates: start: 20061201
  4. VASOTEC [Concomitant]
     Indication: HYPERTENSION
     Route: 048
     Dates: start: 20020101

REACTIONS (21)
  - AMNESIA [None]
  - BALANCE DISORDER [None]
  - BLINDNESS [None]
  - BLOOD PRESSURE INCREASED [None]
  - EXOPHTHALMOS [None]
  - EYE HAEMORRHAGE [None]
  - EYE PENETRATION [None]
  - FACIAL BONES FRACTURE [None]
  - FACIAL PALSY [None]
  - GUN SHOT WOUND [None]
  - JAW FRACTURE [None]
  - OLFACTORY NERVE DISORDER [None]
  - PAIN [None]
  - PNEUMOCEPHALUS [None]
  - POST PROCEDURAL PNEUMONIA [None]
  - RESPIRATORY FAILURE [None]
  - SINUS TACHYCARDIA [None]
  - SKULL FRACTURED BASE [None]
  - SUBDURAL HAEMATOMA [None]
  - TRAUMATIC BRAIN INJURY [None]
  - UNRESPONSIVE TO STIMULI [None]
